FAERS Safety Report 4780954-4 (Version None)
Quarter: 2005Q3

REPORT INFORMATION
  Report Type: 
  Country: None (occurrence: None)
  Receive Date: 20050926
  Receipt Date: 20050926
  Transmission Date: 20060218
  Serious: Yes (Other)
  Sender: FDA-Public Use
  Company Number: None

PATIENT
  Age: 68 Year
  Sex: Female
  Weight: 55.7924 kg

DRUGS (2)
  1. FENTANYL [Suspect]
     Indication: ARTHRITIS
     Dosage: 100 MCG/H
     Dates: start: 20030924
  2. FENTANYL [Suspect]
     Indication: PAIN
     Dosage: 100 MCG/H
     Dates: start: 20030924

REACTIONS (2)
  - INADEQUATE ANALGESIA [None]
  - PHARMACEUTICAL PRODUCT COMPLAINT [None]
